FAERS Safety Report 25534470 (Version 3)
Quarter: 2025Q3

REPORT INFORMATION
  Report Type: Report from Study
  Country: US (occurrence: US)
  Receive Date: 20250709
  Receipt Date: 20250821
  Transmission Date: 20251020
  Serious: Yes (Other)
  Sender: EMD SERONO INC
  Company Number: US-Merck Healthcare KGaA-2025033681

PATIENT
  Age: 70 Year
  Sex: Male

DRUGS (2)
  1. MAVENCLAD [Suspect]
     Active Substance: CLADRIBINE
     Indication: Multiple sclerosis
     Dates: start: 20240731, end: 20240804
  2. MAVENCLAD [Suspect]
     Active Substance: CLADRIBINE
     Dates: start: 20240828, end: 20240901

REACTIONS (5)
  - Tympanic membrane disorder [Unknown]
  - Hypoacusis [Unknown]
  - Multiple sclerosis relapse [Recovering/Resolving]
  - Blood urine present [Unknown]
  - Device occlusion [Unknown]

NARRATIVE: CASE EVENT DATE: 20250625
